FAERS Safety Report 22171190 (Version 4)
Quarter: 2023Q2

REPORT INFORMATION
  Report Type: Report from Study
  Country: CA (occurrence: CA)
  Receive Date: 20230404
  Receipt Date: 20230620
  Transmission Date: 20230722
  Serious: Yes (Other)
  Sender: FDA-Public Use
  Company Number: CA-TAKEDA-2023TUS033062

PATIENT
  Age: 15 Year
  Sex: Female

DRUGS (4)
  1. VEDOLIZUMAB [Suspect]
     Active Substance: VEDOLIZUMAB
     Indication: Colitis ulcerative
     Dosage: 300 MILLIGRAM
     Route: 042
     Dates: start: 20230328
  2. VEDOLIZUMAB [Suspect]
     Active Substance: VEDOLIZUMAB
     Dosage: 300 MILLIGRAM, Q4WEEKS
     Route: 042
     Dates: start: 20230604
  3. ADALIMUMAB [Concomitant]
     Active Substance: ADALIMUMAB
     Dosage: 40 MILLIGRAM
     Dates: start: 20220207
  4. MESALAMINE [Concomitant]
     Active Substance: MESALAMINE
     Dosage: 3 MILLIGRAM
     Dates: start: 202012

REACTIONS (12)
  - Rectal haemorrhage [Unknown]
  - Skin plaque [Not Recovered/Not Resolved]
  - Haematochezia [Unknown]
  - Pruritus [Not Recovered/Not Resolved]
  - Peripheral swelling [Unknown]
  - Feeling hot [Unknown]
  - Abdominal pain upper [Unknown]
  - Diarrhoea [Recovering/Resolving]
  - Off label use [Unknown]
  - Rectal tenesmus [Unknown]
  - Erythema [Not Recovered/Not Resolved]
  - Hypersensitivity [Unknown]

NARRATIVE: CASE EVENT DATE: 20230328
